APPROVED DRUG PRODUCT: CYCLOBENZAPRINE HYDROCHLORIDE
Active Ingredient: CYCLOBENZAPRINE HYDROCHLORIDE
Strength: 10MG
Dosage Form/Route: TABLET;ORAL
Application: A077209 | Product #001 | TE Code: AB
Applicant: OXFORD PHARMACEUTICALS LLC
Approved: Oct 4, 2005 | RLD: No | RS: No | Type: RX